FAERS Safety Report 9571695 (Version 3)
Quarter: 2014Q1

REPORT INFORMATION
  Report Type: Spontaneous
  Country: US (occurrence: US)
  Receive Date: 20131001
  Receipt Date: 20140326
  Transmission Date: 20141002
  Serious: No
  Sender: FDA-Public Use
  Company Number: US-BIOGENIDEC-2013BI065644

PATIENT
  Sex: Female
  Weight: 60 kg

DRUGS (3)
  1. TECFIDERA [Suspect]
     Indication: MULTIPLE SCLEROSIS
  2. AVONEX [Concomitant]
     Indication: MULTIPLE SCLEROSIS
     Route: 030
     Dates: start: 201310, end: 2013
  3. AVONEX [Concomitant]
     Indication: MULTIPLE SCLEROSIS
     Route: 030
     Dates: start: 20131015

REACTIONS (4)
  - Swelling face [Recovered/Resolved]
  - Weight increased [Not Recovered/Not Resolved]
  - Eye swelling [Unknown]
  - Urticaria [Recovered/Resolved]
